FAERS Safety Report 19772019 (Version 2)
Quarter: 2021Q3

REPORT INFORMATION
  Report Type: Spontaneous
  Country: CA (occurrence: CA)
  Receive Date: 20210831
  Receipt Date: 20210831
  Transmission Date: 20211014
  Serious: Yes (Hospitalization, Other)
  Sender: FDA-Public Use
  Company Number: CA-PFIZER INC-2020465274

PATIENT
  Age: 72 Year
  Sex: Male

DRUGS (18)
  1. ATORVASTATIN [Concomitant]
     Active Substance: ATORVASTATIN
  2. INSULIN [Concomitant]
     Active Substance: INSULIN NOS
  3. MULTIVITAMIN + MINERAL [Concomitant]
     Active Substance: MINERALS\VITAMINS
  4. VITAMIN D [COLECALCIFEROL] [Concomitant]
     Active Substance: CHOLECALCIFEROL
  5. ATENOLOL. [Concomitant]
     Active Substance: ATENOLOL
  6. CHLORDIAZEPOXIDE. [Concomitant]
     Active Substance: CHLORDIAZEPOXIDE
  7. TYLENOL [Concomitant]
     Active Substance: ACETAMINOPHEN
     Indication: ARTHRITIS
     Dosage: UNK
  8. KEYTRUDA [Concomitant]
     Active Substance: PEMBROLIZUMAB
     Dosage: UNK
  9. INLYTA [Suspect]
     Active Substance: AXITINIB
     Dosage: 5 MG, 2X/DAY, 1 TABLET
     Route: 048
     Dates: start: 20210112, end: 2021
  10. NOVORAPID [Concomitant]
     Active Substance: INSULIN ASPART
  11. ATACAND [Concomitant]
     Active Substance: CANDESARTAN CILEXETIL
  12. ASPIRIN ANALGESIC [Concomitant]
     Dosage: 81 MG
  13. AMLODIPINE [Concomitant]
     Active Substance: AMLODIPINE BESYLATE
  14. TRAJENTA [Concomitant]
     Active Substance: LINAGLIPTIN
  15. INLYTA [Suspect]
     Active Substance: AXITINIB
     Dosage: UNK
  16. INLYTA [Suspect]
     Active Substance: AXITINIB
     Dosage: 3 MG, 2X/DAY, 1 TABLET
     Route: 048
     Dates: start: 20210520
  17. LANTUS [Concomitant]
     Active Substance: INSULIN GLARGINE
  18. OMEGA 3 FISH OIL [FISH OIL] [Concomitant]

REACTIONS (3)
  - Proteinuria [Unknown]
  - Duodenal ulcer [Unknown]
  - Malaise [Unknown]
